FAERS Safety Report 25075512 (Version 1)
Quarter: 2025Q1

REPORT INFORMATION
  Report Type: Spontaneous
  Country: US (occurrence: US)
  Receive Date: 20250313
  Receipt Date: 20250313
  Transmission Date: 20250409
  Serious: No
  Sender: PFIZER
  Company Number: US-PFIZER INC-202500054341

PATIENT
  Sex: Male
  Weight: 11.34 kg

DRUGS (1)
  1. HYDROCORTISONE [Suspect]
     Active Substance: HYDROCORTISONE
     Indication: Eczema infantile
     Dates: end: 202502

REACTIONS (1)
  - Therapeutic product effect incomplete [Unknown]
